FAERS Safety Report 24366997 (Version 3)
Quarter: 2024Q4

REPORT INFORMATION
  Report Type: Spontaneous
  Country: US (occurrence: US)
  Receive Date: 20240926
  Receipt Date: 20241118
  Transmission Date: 20250114
  Serious: Yes (Hospitalization)
  Sender: PFIZER
  Company Number: US-PFIZER INC-PV202400123988

PATIENT
  Age: 71 Year
  Sex: Female
  Weight: 57.7 kg

DRUGS (7)
  1. BRAFTOVI [Suspect]
     Active Substance: ENCORAFENIB
     Indication: Adenocarcinoma of colon
     Dosage: 75 MG ORAL CAPSULE, 6 CAP
     Route: 048
  2. BRAFTOVI [Suspect]
     Active Substance: ENCORAFENIB
     Indication: Colon cancer
     Dosage: 300 MG
     Route: 048
     Dates: start: 20240917
  3. BRAFTOVI [Suspect]
     Active Substance: ENCORAFENIB
     Dosage: 300 MG, DAILY - TAKE 4 CAPS DAILY (75 MG CAPSULES)
     Route: 048
  4. ZIRABEV [Suspect]
     Active Substance: BEVACIZUMAB-BVZR
     Indication: Adenocarcinoma of colon
     Dosage: 300 MG, IV PIGGYBACK, DAY OF TX, ADMINISTER OVER.- 30 MINUTES, INJECTABLE
     Route: 042
     Dates: start: 20240820, end: 20240820
  5. ZIRABEV [Suspect]
     Active Substance: BEVACIZUMAB-BVZR
     Indication: Small intestinal resection
     Dosage: 300 MG, IV PIGGYBACK, DAY OF TX, ADMINISTER OVER: 30 MINUTES, INJECTABLE
     Route: 042
     Dates: start: 20240903, end: 20240903
  6. ZIRABEV [Suspect]
     Active Substance: BEVACIZUMAB-BVZR
     Indication: Lymphadenectomy
     Dosage: 300 MG, IV(INTRAVENOUS) PIGGYBACK, DAY OF TX (TREATMENT), ADMINISTER OVER: 30 MINUTES, INJECTABLE
     Route: 042
     Dates: start: 20240917, end: 20240917
  7. ZIRABEV [Suspect]
     Active Substance: BEVACIZUMAB-BVZR
     Indication: Colon cancer

REACTIONS (3)
  - Condition aggravated [Unknown]
  - Red cell distribution width increased [Unknown]
  - Laboratory test abnormal [Unknown]
